FAERS Safety Report 9678394 (Version 2)
Quarter: 2013Q4

REPORT INFORMATION
  Report Type: Report from Study
  Country: AR (occurrence: AR)
  Receive Date: 20131108
  Receipt Date: 20131108
  Transmission Date: 20140711
  Serious: Yes (Other)
  Sender: FDA-Public Use
  Company Number: AR-ROCHE-1098890

PATIENT
  Sex: Female

DRUGS (1)
  1. LUCENTIS [Suspect]
     Indication: PRODUCT USED FOR UNKNOWN INDICATION
     Route: 050
     Dates: start: 201203

REACTIONS (6)
  - Keratitis [Not Recovered/Not Resolved]
  - Inappropriate schedule of drug administration [Unknown]
  - Mass [Unknown]
  - Visual acuity reduced [Unknown]
  - Procedural pain [Unknown]
  - Cataract [Unknown]
